FAERS Safety Report 25637864 (Version 5)
Quarter: 2025Q3

REPORT INFORMATION
  Report Type: Report from Study
  Country: US (occurrence: US)
  Receive Date: 20250804
  Receipt Date: 20250922
  Transmission Date: 20251021
  Serious: Yes (Other)
  Sender: ACADIA PHARMACEUTICALS
  Company Number: US-ACADIA PHARMACEUTICALS INC.-ACA-2025-PIM-008859

PATIENT
  Age: 75 Year
  Sex: Male

DRUGS (8)
  1. NUPLAZID [Suspect]
     Active Substance: PIMAVANSERIN TARTRATE
     Indication: Parkinson^s disease psychosis
     Dosage: 34 MILLIGRAM, QD
     Route: 048
     Dates: start: 20250729
  2. NUPLAZID [Suspect]
     Active Substance: PIMAVANSERIN TARTRATE
     Dosage: 34 MILLIGRAM, QD
     Route: 048
     Dates: end: 20250916
  3. FOLIC ACID [Concomitant]
     Active Substance: FOLIC ACID
  4. CREXONT [Concomitant]
     Active Substance: CARBIDOPA\LEVODOPA
  5. CARBIDOPA\LEVODOPA [Concomitant]
     Active Substance: CARBIDOPA\LEVODOPA
  6. VITAMIN B12 [Concomitant]
     Active Substance: CYANOCOBALAMIN
  7. DIACEREIN [Concomitant]
     Active Substance: DIACEREIN
     Indication: Drooling
  8. UREA [Concomitant]
     Active Substance: UREA

REACTIONS (6)
  - Hallucination, visual [Not Recovered/Not Resolved]
  - Condition aggravated [Not Recovered/Not Resolved]
  - Delusion [Not Recovered/Not Resolved]
  - Fatigue [Unknown]
  - Adverse drug reaction [Unknown]
  - Anger [Unknown]

NARRATIVE: CASE EVENT DATE: 20250729
